FAERS Safety Report 8558649-0 (Version None)
Quarter: 2012Q3

REPORT INFORMATION
  Report Type: 
  Country: None (occurrence: None)
  Receive Date: 20120801
  Receipt Date: 20120718
  Transmission Date: 20120928
  Serious: Yes (Other)
  Sender: FDA-Public Use
  Company Number: CHPA2012US001883

PATIENT
  Age: 57 Year
  Sex: Male

DRUGS (3)
  1. EXCEDRIN (MIGRAINE) [Suspect]
     Dosage: 2 DF, UNK
     Route: 048
     Dates: start: 20100601, end: 20100601
  2. EXCEDRIN (MIGRAINE) [Suspect]
     Indication: SINUS CONGESTION
     Dosage: 2 DF, UNK
     Route: 048
     Dates: start: 20100601, end: 20100601
  3. EXCEDRIN (MIGRAINE) [Suspect]
     Dosage: 1 DF, UNK
     Route: 048
     Dates: start: 20100801, end: 20100801

REACTIONS (4)
  - OFF LABEL USE [None]
  - IDIOPATHIC URTICARIA [None]
  - HEADACHE [None]
  - CHEST PAIN [None]
